FAERS Safety Report 8656836 (Version 3)
Quarter: 2015Q4

REPORT INFORMATION
  Report Type: Report from Study
  Country: CA (occurrence: CA)
  Receive Date: 20120709
  Receipt Date: 20151207
  Transmission Date: 20160305
  Serious: Yes (Life-Threatening, Hospitalization, Other)
  Sender: FDA-Public Use
  Company Number: CA-ROCHE-1084211

PATIENT
  Age: 68 Year
  Sex: Male
  Weight: 122.13 kg

DRUGS (13)
  1. RITUXIMAB [Suspect]
     Active Substance: RITUXIMAB
     Indication: IMMUNE THROMBOCYTOPENIC PURPURA
     Dosage: LAST DOS EPRIOR TO SAE:05/JUL/2012
     Route: 042
     Dates: start: 20120614
  2. PREDNISONE. [Suspect]
     Active Substance: PREDNISONE
     Indication: PRODUCT USED FOR UNKNOWN INDICATION
     Route: 065
     Dates: start: 20151129
  3. ZOPICLONE [Concomitant]
     Active Substance: ZOPICLONE
  4. DIPHENHYDRAMINE. [Concomitant]
     Active Substance: DIPHENHYDRAMINE
  5. INSULIN [Concomitant]
     Active Substance: INSULIN NOS
  6. CRESTOR [Concomitant]
     Active Substance: ROSUVASTATIN CALCIUM
  7. SENOKOT [Concomitant]
     Active Substance: SENNOSIDES
     Route: 065
     Dates: start: 201511
  8. RITUXIMAB [Suspect]
     Active Substance: RITUXIMAB
     Indication: THROMBOTIC THROMBOCYTOPENIC PURPURA
  9. METFORMIN [Concomitant]
     Active Substance: METFORMIN HYDROCHLORIDE
     Route: 065
  10. ATENOLOL. [Concomitant]
     Active Substance: ATENOLOL
  11. RAMIPRIL. [Concomitant]
     Active Substance: RAMIPRIL
  12. TYLENOL WITH CODEINE [Concomitant]
     Active Substance: ACETAMINOPHEN\CODEINE PHOSPHATE
  13. TAMSULOSIN [Concomitant]
     Active Substance: TAMSULOSIN

REACTIONS (13)
  - Pain in extremity [Unknown]
  - Spleen disorder [Unknown]
  - Asthenia [Unknown]
  - Oedema [Unknown]
  - Confusional state [Unknown]
  - Platelet count decreased [Not Recovered/Not Resolved]
  - Hypertension [Unknown]
  - Blood glucose fluctuation [Unknown]
  - Unevaluable event [Unknown]
  - Blood cholesterol increased [Unknown]
  - Delusion [Unknown]
  - Immobile [Unknown]
  - Pulmonary thrombosis [Unknown]

NARRATIVE: CASE EVENT DATE: 20120629
